FAERS Safety Report 15285736 (Version 1)
Quarter: 2018Q3

REPORT INFORMATION
  Report Type: Spontaneous
  Country: US (occurrence: US)
  Receive Date: 20180802
  Receipt Date: 20180802
  Transmission Date: 20181010
  Serious: Yes (Life-Threatening, Hospitalization, Other)
  Sender: FDA-Public Use
  Company Number: None

PATIENT
  Age: 26 Year
  Sex: Male
  Weight: 85.5 kg

DRUGS (1)
  1. BUPRENORPHINE/NALOXONE  TABLETS [Suspect]
     Active Substance: BUPRENORPHINE\NALOXONE
     Indication: DRUG DEPENDENCE
     Route: 060
     Dates: start: 20180620, end: 20180726

REACTIONS (2)
  - Drug intolerance [None]
  - General physical health deterioration [None]

NARRATIVE: CASE EVENT DATE: 20180620
